FAERS Safety Report 5020284-9 (Version None)
Quarter: 2006Q2

REPORT INFORMATION
  Report Type: 
  Country: None (occurrence: None)
  Receive Date: 20060606
  Receipt Date: 20060508
  Transmission Date: 20061013
  Serious: Yes (Hospitalization)
  Sender: FDA-Public Use
  Company Number: 2006BI006608

PATIENT
  Age: 40 Year
  Sex: Female
  Weight: 68.9467 kg

DRUGS (2)
  1. AVONEX [Suspect]
     Indication: MULTIPLE SCLEROSIS
     Dosage: 30 UG;QW;IM
     Route: 030
     Dates: start: 19980101, end: 20030801
  2. AVONEX [Suspect]
     Indication: MULTIPLE SCLEROSIS
     Dosage: 30 UG;QW;M
     Route: 030
     Dates: start: 20030801, end: 20060505

REACTIONS (12)
  - ABORTION SPONTANEOUS [None]
  - AMNESIA [None]
  - ANXIETY [None]
  - BLADDER PROLAPSE [None]
  - DIFFICULTY IN WALKING [None]
  - DRUG EXPOSURE DURING PREGNANCY [None]
  - INTESTINAL PROLAPSE [None]
  - MOVEMENT DISORDER [None]
  - MUSCLE SPASMS [None]
  - NAUSEA [None]
  - RESTLESS LEGS SYNDROME [None]
  - UTERINE PROLAPSE [None]
